FAERS Safety Report 4754763-6 (Version None)
Quarter: 2005Q3

REPORT INFORMATION
  Report Type: 
  Country: None (occurrence: None)
  Receive Date: 20050826
  Receipt Date: 20050826
  Transmission Date: 20060218
  Serious: Yes (Other)
  Sender: FDA-Public Use
  Company Number: None

PATIENT
  Age: 1 Day
  Sex: Female
  Weight: 10 kg

DRUGS (2)
  1. BACTRIM [Suspect]
     Indication: INFECTION
     Dosage: 1/2 TSP Q 12 HRS
  2. GUAIFENSIN DM [Concomitant]

REACTIONS (1)
  - RASH ERYTHEMATOUS [None]
